FAERS Safety Report 12914544 (Version 2)
Quarter: 2017Q1

REPORT INFORMATION
  Report Type: Spontaneous
  Country: US (occurrence: US)
  Receive Date: 20161106
  Receipt Date: 20170216
  Transmission Date: 20170428
  Serious: No
  Sender: FDA-Public Use
  Company Number: US-RELYPSA-RLY2016003181

PATIENT
  Age: 91 Year
  Sex: Male

DRUGS (14)
  1. CALCIUM CARBONATE. [Concomitant]
     Active Substance: CALCIUM CARBONATE
  2. CINNAMON                           /01647501/ [Concomitant]
     Active Substance: CINNAMON
  3. METOPROLOL. [Concomitant]
     Active Substance: METOPROLOL
  4. CALCITRIOL. [Concomitant]
     Active Substance: CALCITRIOL
  5. IRBESARTAN. [Concomitant]
     Active Substance: IRBESARTAN
  6. ROSUVASTATIN. [Concomitant]
     Active Substance: ROSUVASTATIN
  7. FINASTERIDE. [Concomitant]
     Active Substance: FINASTERIDE
  8. ISOSORBIDE. [Concomitant]
     Active Substance: ISOSORBIDE
  9. DOXAZOSIN [Concomitant]
     Active Substance: DOXAZOSIN\DOXAZOSIN MESYLATE
  10. VELTASSA [Suspect]
     Active Substance: PATIROMER
     Indication: HYPERKALAEMIA
     Dosage: 8.4 G, UNKNOWN
     Route: 065
     Dates: start: 201610, end: 201610
  11. FERROUS GLUCONATE [Concomitant]
     Active Substance: FERROUS GLUCONATE
  12. GLIMEPIRIDE. [Concomitant]
     Active Substance: GLIMEPIRIDE
  13. LEXAPRO [Concomitant]
     Active Substance: ESCITALOPRAM OXALATE
  14. HYDRALAZINE [Concomitant]
     Active Substance: HYDRALAZINE HYDROCHLORIDE

REACTIONS (4)
  - Abdominal discomfort [Recovered/Resolved]
  - Micturition disorder [Recovered/Resolved]
  - Flatulence [Recovered/Resolved]
  - Nausea [Recovered/Resolved]

NARRATIVE: CASE EVENT DATE: 201610
